FAERS Safety Report 6298242-6 (Version None)
Quarter: 2009Q3

REPORT INFORMATION
  Report Type: 
  Country: None (occurrence: None)
  Receive Date: 20090805
  Receipt Date: 20090722
  Transmission Date: 20100115
  Serious: Yes (Hospitalization)
  Sender: FDA-Public Use
  Company Number: DE-MYLANLABS-2009S1013037

PATIENT
  Age: 74 Year
  Sex: Male
  Weight: 73 kg

DRUGS (15)
  1. BISOPROLOL [Suspect]
     Indication: HYPERTENSION
     Route: 048
     Dates: start: 20040101
  2. NOVONORM [Interacting]
     Indication: TYPE 2 DIABETES MELLITUS
     Dosage: 1-1-1-0 (ZU DEN MAHLZEITEN)
     Route: 048
     Dates: start: 20080818, end: 20080831
  3. BENALAPRIL [Interacting]
     Indication: HYPERTENSION
     Route: 048
     Dates: start: 20040101
  4. KATADOLON /00890102/ [Concomitant]
     Indication: PAIN
     Route: 048
     Dates: start: 20070901
  5. PHOS-EX [Concomitant]
     Indication: HYPERPHOSPHATAEMIA
     Route: 048
     Dates: start: 20070901
  6. SALBUTAMOL [Concomitant]
     Indication: CHRONIC OBSTRUCTIVE PULMONARY DISEASE
     Route: 055
     Dates: start: 20080101
  7. FOSTER /00500401/ [Concomitant]
     Indication: CHRONIC OBSTRUCTIVE PULMONARY DISEASE
     Route: 055
  8. PALLADON /00080901/ [Concomitant]
     Indication: PAIN
     Route: 048
     Dates: start: 20070901
  9. BICANORM /00049401/ [Concomitant]
     Indication: METABOLIC ACIDOSIS
     Route: 048
     Dates: start: 20070901
  10. NEURONTIN [Concomitant]
     Indication: NEURALGIA
     Dosage: ON DIALYSIS DAYS (MON, WED, FRI)
     Route: 048
     Dates: start: 20070901
  11. PRAVASTATIN [Concomitant]
     Indication: PROPHYLAXIS
     Route: 048
     Dates: start: 20040101
  12. CALCIUM [Concomitant]
     Indication: HYPERKALAEMIA
     Route: 048
     Dates: start: 20040101
  13. OMEP [Concomitant]
     Indication: PROPHYLAXIS AGAINST GASTROINTESTINAL ULCER
     Route: 048
     Dates: start: 20040101
  14. PREDNISOLONE [Concomitant]
     Indication: RHEUMATOID ARTHRITIS
     Route: 048
     Dates: start: 20050101
  15. ISCOVER [Concomitant]
     Indication: PROPHYLAXIS
     Route: 048
     Dates: start: 20010101

REACTIONS (2)
  - DRUG INTERACTION [None]
  - HYPOGLYCAEMIA [None]
